FAERS Safety Report 8990876 (Version 3)
Quarter: 2013Q1

REPORT INFORMATION
  Report Type: Spontaneous
  Country: JP (occurrence: JP)
  Receive Date: 20121231
  Receipt Date: 20130122
  Transmission Date: 20140127
  Serious: Yes (Life-Threatening, Hospitalization, Other)
  Sender: FDA-Public Use
  Company Number: PHHY2012JP115800

PATIENT
  Sex: Female
  Weight: 43 kg

DRUGS (4)
  1. NEORAL [Suspect]
     Indication: POLYMYOSITIS
     Dosage: 100 MG, UNK
     Route: 048
  2. PEMETREXED [Suspect]
  3. GEMCITABINE [Concomitant]
     Dosage: 1300 MG
     Route: 041
  4. CORTICOSTEROIDS [Concomitant]
     Dates: start: 20081008

REACTIONS (3)
  - Neutropenia [Recovered/Resolved]
  - Lung adenocarcinoma [Unknown]
  - Haemoptysis [Unknown]
